FAERS Safety Report 8341412-3 (Version None)
Quarter: 2012Q2

REPORT INFORMATION
  Report Type: 
  Country: None (occurrence: None)
  Receive Date: 20120502
  Receipt Date: 20120424
  Transmission Date: 20120825
  Serious: Yes (Hospitalization, Other)
  Sender: FDA-Public Use
  Company Number: DAV-AE-MTX-12-34

PATIENT
  Age: 58 Year
  Sex: Female
  Weight: 57 kg

DRUGS (5)
  1. RISEDRONATE SODIUM (RISEDRONATE SODIUM) N/A [Concomitant]
  2. RHEUMATREX [Suspect]
     Indication: PRODUCT USED FOR UNKNOWN INDICATION
     Dosage: UNK, ORAL
     Route: 048
  3. BENET (RIDSEDRONATE SODIUM) [Concomitant]
  4. ENBREL [Suspect]
     Indication: PRODUCT USED FOR UNKNOWN INDICATION
     Dosage: 25 MG, UNK, SUBCUTANEOUS
     Route: 058
  5. FOLIAMIN (FOLIC ACID) N/A [Concomitant]

REACTIONS (11)
  - OEDEMA PERIPHERAL [None]
  - ALDOLASE INCREASED [None]
  - LIVER DISORDER [None]
  - ANXIETY [None]
  - POLYMYOSITIS [None]
  - ALANINE AMINOTRANSFERASE INCREASED [None]
  - ASPARTATE AMINOTRANSFERASE INCREASED [None]
  - BLOOD ALBUMIN DECREASED [None]
  - PLEURAL EFFUSION [None]
  - BLOOD LACTATE DEHYDROGENASE INCREASED [None]
  - ANTINUCLEAR ANTIBODY POSITIVE [None]
